FAERS Safety Report 23323533 (Version 1)
Quarter: 2023Q4

REPORT INFORMATION
  Report Type: Spontaneous
  Country: US (occurrence: None)
  Receive Date: 20231220
  Receipt Date: 20231220
  Transmission Date: 20240109
  Serious: No
  Sender: FDA-Public Use
  Company Number: US-ROCHE-3393282

PATIENT
  Sex: Female
  Weight: 59.02 kg

DRUGS (4)
  1. RITUXAN [Suspect]
     Active Substance: RITUXIMAB
     Indication: Non-Hodgkin^s lymphoma
     Dosage: FREQUENCY 4, INITIAL DOSING LAST DOSE GIVEN ON /MAR/2022, /APR/2023
     Route: 041
     Dates: start: 202203
  2. RITUXAN [Suspect]
     Active Substance: RITUXIMAB
     Dosage: MAINTENANCE DOSING
     Route: 041
  3. SYNTHROID [Concomitant]
     Active Substance: LEVOTHYROXINE SODIUM
     Indication: Hypothyroidism
     Dosage: ONGOING :YES
  4. ATORVASTATIN [Concomitant]
     Active Substance: ATORVASTATIN
     Dosage: HALF OF THE 10 MG DOSE ONCE A DAY (CONFIRMED 5MG DOSE)

REACTIONS (2)
  - Nasopharyngitis [Not Recovered/Not Resolved]
  - Off label use [Unknown]
